FAERS Safety Report 7409416-2 (Version None)
Quarter: 2011Q2

REPORT INFORMATION
  Report Type: 
  Country: None (occurrence: None)
  Receive Date: 20110412
  Receipt Date: 20110321
  Transmission Date: 20111010
  Serious: Yes (Hospitalization, Other)
  Sender: FDA-Public Use
  Company Number: US-BAYER-201039695NA

PATIENT
  Age: 27 Year
  Sex: Female
  Weight: 113.38 kg

DRUGS (4)
  1. YASMIN [Suspect]
     Indication: ACNE
     Dosage: UNK UNK, QD
     Route: 048
     Dates: start: 20050501, end: 20050801
  2. EFFEXOR [Concomitant]
  3. VICODIN [Concomitant]
  4. ATIVAN [Concomitant]

REACTIONS (2)
  - ANXIETY [None]
  - PULMONARY EMBOLISM [None]
